FAERS Safety Report 18150198 (Version 1)
Quarter: 2020Q3

REPORT INFORMATION
  Report Type: Spontaneous
  Country: US (occurrence: US)
  Receive Date: 20200814
  Receipt Date: 20200814
  Transmission Date: 20201103
  Serious: Yes (Hospitalization)
  Sender: FDA-Public Use
  Company Number: None

PATIENT
  Age: 35 Year
  Sex: Male

DRUGS (8)
  1. CEPHALEXIN. [Concomitant]
     Active Substance: CEPHALEXIN
  2. HUMIRA [Suspect]
     Active Substance: ADALIMUMAB
     Indication: CROHN^S DISEASE
     Dosage: ?          OTHER FREQUENCY:EVERY 2 WEEKS;?
     Route: 058
     Dates: start: 20200519
  3. PREDNISONE. [Concomitant]
     Active Substance: PREDNISONE
  4. VIT. D [Concomitant]
  5. WARFARIN [Concomitant]
     Active Substance: WARFARIN
  6. HYDROCO/APAP [Concomitant]
     Active Substance: ACETAMINOPHEN\HYDROCODONE
  7. ONDANSETRON [Concomitant]
     Active Substance: ONDANSETRON
  8. ENOXAPARIN [Concomitant]
     Active Substance: ENOXAPARIN

REACTIONS (1)
  - Pancreatitis [None]
